FAERS Safety Report 21952660 (Version 2)
Quarter: 2023Q1

REPORT INFORMATION
  Report Type: Spontaneous
  Country: US (occurrence: US)
  Receive Date: 20230203
  Receipt Date: 20230222
  Transmission Date: 20230417
  Serious: Yes (Death, Hospitalization)
  Sender: FDA-Public Use
  Company Number: US-MALLINCKRODT-T202300823

PATIENT
  Age: 72 Year
  Sex: Male

DRUGS (1)
  1. INOMAX [Suspect]
     Active Substance: NITRIC OXIDE
     Indication: Influenza A virus test positive
     Dosage: 20 PPM, INHALATION
     Route: 055
     Dates: start: 20230122, end: 20230127

REACTIONS (3)
  - Influenza A virus test positive [Fatal]
  - Product use issue [Unknown]
  - Product use in unapproved indication [Unknown]

NARRATIVE: CASE EVENT DATE: 20230116
